FAERS Safety Report 5489590-8 (Version None)
Quarter: 2007Q4

REPORT INFORMATION
  Report Type: 
  Country: None (occurrence: None)
  Receive Date: 20071018
  Receipt Date: 20071011
  Transmission Date: 20080405
  Serious: Yes (Hospitalization)
  Sender: FDA-Public Use
  Company Number: JP-MERCK-0710USA01308

PATIENT
  Age: 25 Year
  Sex: Female

DRUGS (2)
  1. PEPCID RPD [Suspect]
     Indication: ABDOMINAL PAIN
     Route: 048
     Dates: start: 20061101, end: 20070101
  2. [THERAPY UNSPECIFIED] [Concomitant]
     Indication: PROPHYLAXIS AGAINST GASTROINTESTINAL ULCER
     Route: 048
     Dates: start: 20061101, end: 20070101

REACTIONS (1)
  - NEPHROTIC SYNDROME [None]
